FAERS Safety Report 5929550-3 (Version None)
Quarter: 2008Q4

REPORT INFORMATION
  Report Type: 
  Country: None (occurrence: None)
  Receive Date: 20081024
  Receipt Date: 20081017
  Transmission Date: 20090506
  Serious: Yes (Hospitalization)
  Sender: FDA-Public Use
  Company Number: B0542811A

PATIENT
  Age: 82 Year
  Sex: Female
  Weight: 57 kg

DRUGS (1)
  1. DEROXAT [Suspect]
     Indication: DEPRESSION
     Dosage: 40MG PER DAY
     Route: 048
     Dates: start: 20080601, end: 20080814

REACTIONS (16)
  - ACCIDENTAL OVERDOSE [None]
  - ANOREXIA [None]
  - APATHY [None]
  - ASTHENIA [None]
  - DRUG LEVEL INCREASED [None]
  - DRUG PRESCRIBING ERROR [None]
  - FALL [None]
  - GENERAL PHYSICAL HEALTH DETERIORATION [None]
  - HAEMATOMA [None]
  - HEAD INJURY [None]
  - HYPOAESTHESIA [None]
  - HYPOMETABOLISM [None]
  - HYPOREFLEXIA [None]
  - MOOD SWINGS [None]
  - SKIN ULCER [None]
  - WEIGHT DECREASED [None]
